FAERS Safety Report 22837058 (Version 3)
Quarter: 2024Q2

REPORT INFORMATION
  Report Type: Spontaneous
  Country: JP (occurrence: JP)
  Receive Date: 20230818
  Receipt Date: 20240417
  Transmission Date: 20240716
  Serious: Yes (Life-Threatening, Hospitalization, Other)
  Sender: FDA-Public Use
  Company Number: None

PATIENT
  Age: 38 Year
  Sex: Male

DRUGS (11)
  1. MYCOPHENOLATE MOFETIL [Suspect]
     Active Substance: MYCOPHENOLATE MOFETIL
     Indication: Immunosuppressant drug therapy
     Dosage: UNK; 1 WEEKS BEFORE THE OPERATION
     Route: 065
  2. MYCOPHENOLATE MOFETIL [Suspect]
     Active Substance: MYCOPHENOLATE MOFETIL
     Indication: Prophylaxis against transplant rejection
     Dosage: UNK; AFTER TRANSPLANTATION
     Route: 065
  3. TACROLIMUS [Suspect]
     Active Substance: TACROLIMUS
     Indication: Immunosuppressant drug therapy
     Dosage: UNK; 1 WEEKS BEFORE THE OPERATION
     Route: 065
  4. TACROLIMUS [Suspect]
     Active Substance: TACROLIMUS
     Indication: Prophylaxis against transplant rejection
     Dosage: UNK; AFTER TRANSPLANTATION (TROUGH LEVEL WAS CONTROLLED WITHIN A RANGE OF 9.4 TO 18.3 NG/ML FOR 7 DA
     Route: 065
  5. TACROLIMUS [Suspect]
     Active Substance: TACROLIMUS
     Dosage: UNK; TROUGH LEVEL WAS CONTROLLED WITHIN A RANGE OF 7.9 TO 12.5 NG/ML FOR 7 TO 14 DAYS
     Route: 065
  6. CYCLOSPORINE [Suspect]
     Active Substance: CYCLOSPORINE
     Indication: Immunosuppressant drug therapy
     Dosage: UNK; STARTED ON POD 15
     Route: 065
  7. CYCLOSPORINE [Suspect]
     Active Substance: CYCLOSPORINE
     Indication: Prophylaxis against transplant rejection
  8. METHYLPREDNISOLONE [Suspect]
     Active Substance: METHYLPREDNISOLONE
     Indication: Immunosuppressant drug therapy
     Dosage: UNK; AFTER TRANSPLANTATION
     Route: 065
  9. METHYLPREDNISOLONE [Suspect]
     Active Substance: METHYLPREDNISOLONE
     Indication: Prophylaxis against transplant rejection
  10. RITUXIMAB [Suspect]
     Active Substance: RITUXIMAB
     Indication: Immunosuppressant drug therapy
     Dosage: 375 MILLIGRAM/SQ. METER, 3 WEEKS BEFORE THE OPERATION
     Route: 065
  11. RITUXIMAB [Suspect]
     Active Substance: RITUXIMAB
     Indication: Prophylaxis against transplant rejection

REACTIONS (7)
  - Arterial haemorrhage [Recovered/Resolved]
  - Herpes zoster meningoencephalitis [Recovered/Resolved]
  - Hemiplegia [Unknown]
  - Post procedural bile leak [Recovered/Resolved]
  - Blood loss anaemia [Recovered/Resolved]
  - Intra-abdominal haemorrhage [Recovered/Resolved]
  - Biliary tract infection [Recovered/Resolved]
